FAERS Safety Report 10086935 (Version 1)
Quarter: 2014Q2

REPORT INFORMATION
  Report Type: Report from Study
  Country: US (occurrence: US)
  Receive Date: 20140418
  Receipt Date: 20140418
  Transmission Date: 20141212
  Serious: Yes (Hospitalization)
  Sender: FDA-Public Use
  Company Number: PHEH2014US007378

PATIENT
  Age: 22 Year
  Sex: Female
  Weight: 56.69 kg

DRUGS (8)
  1. TOBI PODHALER [Suspect]
     Indication: CYSTIC FIBROSIS
     Dosage: 112 MG, BID
     Route: 055
     Dates: start: 2013
  2. OMEPRAZOLE [Concomitant]
     Dosage: UNK
  3. URSODIOL [Concomitant]
     Dosage: UNK
  4. AZITHROMYCIN [Concomitant]
     Dosage: UNK
  5. PULMOZYME [Concomitant]
     Dosage: UNK
  6. ALBUTEROL [Concomitant]
     Dosage: UNK
  7. SYMBICORT [Concomitant]
     Dosage: UNK
  8. BIOTIN [Concomitant]

REACTIONS (3)
  - Hypersensitivity [Recovered/Resolved]
  - Pharyngeal oedema [Recovered/Resolved]
  - Chest discomfort [Recovered/Resolved]
